FAERS Safety Report 4489277-4 (Version None)
Quarter: 2004Q4

REPORT INFORMATION
  Report Type: 
  Country: None (occurrence: None)
  Receive Date: 20041026
  Receipt Date: 20040917
  Transmission Date: 20050328
  Serious: Yes (Life-Threatening, Hospitalization)
  Sender: FDA-Public Use
  Company Number: A01200404510

PATIENT
  Age: 74 Year
  Sex: Male

DRUGS (5)
  1. ELIGARD - (LEUPRORELIN ACETATE) - SUSPENSION [Suspect]
     Indication: PROSTATE CANCER
     Dosage: SUBCUTANEOUS
     Route: 058
     Dates: start: 20040715, end: 20040715
  2. VERAPAMIL [Concomitant]
  3. RAMIPRIL [Concomitant]
  4. ALLOPURINOL [Concomitant]
  5. PHENROCOUMON [Concomitant]

REACTIONS (5)
  - HAEMATOCRIT ABNORMAL [None]
  - LEFT VENTRICULAR FAILURE [None]
  - MYOCARDIAL INFARCTION [None]
  - PROSTATIC SPECIFIC ANTIGEN INCREASED [None]
  - RED BLOOD CELL COUNT DECREASED [None]
